FAERS Safety Report 8580792-0 (Version None)
Quarter: 2012Q3

REPORT INFORMATION
  Report Type: 
  Country: None (occurrence: None)
  Receive Date: 20120809
  Receipt Date: 20120803
  Transmission Date: 20120928
  Serious: Yes (Other)
  Sender: FDA-Public Use
  Company Number: US-BIOGENIDEC-2012BI029224

PATIENT
  Age: 57 Year
  Sex: Male

DRUGS (1)
  1. AVONEX [Suspect]
     Indication: MULTIPLE SCLEROSIS
     Route: 030
     Dates: start: 20120723

REACTIONS (9)
  - CONVULSION [None]
  - FEAR [None]
  - PAIN [None]
  - CRYING [None]
  - FATIGUE [None]
  - INFLUENZA LIKE ILLNESS [None]
  - ARTHROPATHY [None]
  - ASTHENIA [None]
  - EMOTIONAL DISORDER [None]
